FAERS Safety Report 20673564 (Version 3)
Quarter: 2022Q2

REPORT INFORMATION
  Report Type: Spontaneous
  Country: JP (occurrence: JP)
  Receive Date: 20220405
  Receipt Date: 20220426
  Transmission Date: 20220720
  Serious: Yes (Death, Other)
  Sender: FDA-Public Use
  Company Number: JP-ASTRAZENECA-220018968_070810_P_1

PATIENT
  Age: 0 Year
  Sex: Female
  Weight: 3 kg

DRUGS (4)
  1. SYNAGIS [Suspect]
     Active Substance: PALIVIZUMAB
     Indication: Antiviral prophylaxis
     Route: 030
     Dates: start: 20220325, end: 20220325
  2. TAMBOCOR [Suspect]
     Active Substance: FLECAINIDE ACETATE
     Indication: Cardiac failure chronic
     Route: 050
     Dates: start: 20220325
  3. SODIUM FERROUS CITRATE [Suspect]
     Active Substance: SODIUM FERROUS CITRATE
     Indication: Iron deficiency anaemia
     Route: 050
     Dates: start: 20220120, end: 20220325
  4. BISACODYL [Suspect]
     Active Substance: BISACODYL
     Indication: Constipation neonatal
     Dosage: 1 TO 3 DOSES/DAY2MG/L DAILY
     Route: 054
     Dates: start: 20220325

REACTIONS (2)
  - Vomiting [Fatal]
  - Respiratory failure [Fatal]

NARRATIVE: CASE EVENT DATE: 20220326
